FAERS Safety Report 15008810 (Version 2)
Quarter: 2018Q3

REPORT INFORMATION
  Report Type: Spontaneous
  Country: JP (occurrence: JP)
  Receive Date: 20180613
  Receipt Date: 20180703
  Transmission Date: 20181010
  Serious: Yes (Hospitalization)
  Sender: FDA-Public Use
  Company Number: JP-SHIONOGI, INC.-2018000993

PATIENT
  Age: 74 Year
  Sex: Male
  Weight: 44.6 kg

DRUGS (11)
  1. DOCETAXEL. [Suspect]
     Active Substance: DOCETAXEL
     Dosage: 87.6 MG, QD
     Route: 065
     Dates: start: 20180502, end: 20180502
  2. FLUOROURACIL. [Suspect]
     Active Substance: FLUOROURACIL
     Dosage: 876 MG, QD
     Route: 041
     Dates: start: 20180502, end: 20180506
  3. SYMPROIC [Suspect]
     Active Substance: NALDEMEDINE
     Dosage: 0.2 MG, QD
     Route: 048
     Dates: start: 20180502, end: 20180509
  4. GRANISETRON [Concomitant]
     Active Substance: GRANISETRON
     Dosage: 3 MG, QD
     Route: 041
     Dates: start: 20180502, end: 20180502
  5. SENNOSIDE                          /00571901/ [Concomitant]
     Active Substance: SENNOSIDES A AND B
     Dosage: 24 MG, QD
     Route: 048
     Dates: start: 20180507, end: 20180507
  6. CLYSTER [Concomitant]
     Active Substance: GLYCERIN\THYMOL
     Dosage: 60 ML, QD
     Route: 054
     Dates: start: 20180505, end: 20180505
  7. ALOXI [Concomitant]
     Active Substance: PALONOSETRON HYDROCHLORIDE
     Dosage: 0.75 MG, QD
     Route: 041
     Dates: start: 20180505, end: 20180505
  8. SENNOSIDE                          /00571901/ [Concomitant]
     Active Substance: SENNOSIDES A AND B
     Dosage: 24 MG, QD
     Route: 048
     Dates: start: 20180504, end: 20180504
  9. SYMPROIC [Suspect]
     Active Substance: NALDEMEDINE
     Route: 048
     Dates: start: 20180502, end: 20180509
  10. CISPLATIN. [Suspect]
     Active Substance: CISPLATIN
     Dosage: 87.6 MG, QD
     Route: 041
     Dates: start: 20180505, end: 20180505
  11. TRAMAL [Concomitant]
     Active Substance: TRAMADOL
     Dosage: 25 MG, TID
     Route: 048
     Dates: start: 20180502

REACTIONS (2)
  - Diarrhoea [Recovered/Resolved]
  - Hypokalaemia [Recovered/Resolved]

NARRATIVE: CASE EVENT DATE: 20180508
